FAERS Safety Report 15435803 (Version 1)
Quarter: 2018Q3

REPORT INFORMATION
  Report Type: Spontaneous
  Country: GB (occurrence: GB)
  Receive Date: 20180927
  Receipt Date: 20180927
  Transmission Date: 20181010
  Serious: Yes (Other)
  Sender: FDA-Public Use
  Company Number: GB-TEVA-2018-GB-958976

PATIENT
  Age: 64 Year
  Sex: Female
  Weight: 42.5 kg

DRUGS (2)
  1. VAGIFEM [Concomitant]
     Active Substance: ESTRADIOL
     Route: 065
  2. AMLODIPINE [Suspect]
     Active Substance: AMLODIPINE BESYLATE
     Indication: ESSENTIAL HYPERTENSION
     Route: 048
     Dates: start: 2014

REACTIONS (5)
  - Anosmia [Recovered/Resolved]
  - Ageusia [Unknown]
  - Decreased appetite [Unknown]
  - Purpura [Recovered/Resolved]
  - Malaise [Recovered/Resolved]
